FAERS Safety Report 4990563-X (Version None)
Quarter: 2006Q2

REPORT INFORMATION
  Report Type: 
  Country: None (occurrence: None)
  Receive Date: 20060427
  Receipt Date: 20060418
  Transmission Date: 20061013
  Serious: Yes (Hospitalization, Other)
  Sender: FDA-Public Use
  Company Number: 2006038140

PATIENT
  Sex: Male

DRUGS (1)
  1. CYTOTEC [Suspect]
     Indication: LABOUR INDUCTION
     Dosage: 2-1/2 TABLET + ONE TABLET (2 DOSES) ORAL
     Route: 064
     Dates: start: 20060221, end: 20060201

REACTIONS (11)
  - CEREBRAL ARTERY EMBOLISM [None]
  - CEREBROVASCULAR ACCIDENT [None]
  - CONVULSION NEONATAL [None]
  - DRUG EXPOSURE DURING PREGNANCY [None]
  - ELECTROENCEPHALOGRAM ABNORMAL [None]
  - EYE DISORDER [None]
  - FOETAL HEART RATE INCREASED [None]
  - INFANTILE APNOEIC ATTACK [None]
  - NEONATAL ANOXIA [None]
  - NEONATAL DISORDER [None]
  - NEONATAL RESPIRATORY DISTRESS SYNDROME [None]
